FAERS Safety Report 12599230 (Version 7)
Quarter: 2019Q1

REPORT INFORMATION
  Report Type: Spontaneous
  Country: US (occurrence: US)
  Receive Date: 20160727
  Receipt Date: 20190211
  Transmission Date: 20190417
  Serious: No
  Sender: FDA-Public Use
  Company Number: US-PFIZER INC-2016310171

PATIENT
  Age: 68 Year
  Sex: Female
  Weight: 57 kg

DRUGS (4)
  1. FLECTOR [Suspect]
     Active Substance: DICLOFENAC EPOLAMINE
     Indication: INTERVERTEBRAL DISC PROTRUSION
     Dosage: 1 DF, 2X/DAY(1 PATCH TO SKIN TWICE A DAY 90 DAYS)
     Route: 062
  2. FLECTOR [Suspect]
     Active Substance: DICLOFENAC EPOLAMINE
     Indication: BACK PAIN
     Dosage: 1 DF, 4X/DAY (1 PATCH TO SKIN FOR 90 DAYS)
     Route: 062
  3. FLECTOR [Suspect]
     Active Substance: DICLOFENAC EPOLAMINE
     Indication: BACK INJURY
     Dosage: UNK UNK, 2X/DAY
     Route: 062
     Dates: start: 201606
  4. FLECTOR [Suspect]
     Active Substance: DICLOFENAC EPOLAMINE
     Indication: GENERALISED ANXIETY DISORDER

REACTIONS (3)
  - Drug effective for unapproved indication [Unknown]
  - Prescribed overdose [Unknown]
  - Wrong technique in product usage process [Unknown]
